FAERS Safety Report 4807589-9 (Version None)
Quarter: 2005Q4

REPORT INFORMATION
  Report Type: 
  Country: None (occurrence: None)
  Receive Date: 20051020
  Receipt Date: 20051010
  Transmission Date: 20060501
  Serious: Yes (Other)
  Sender: FDA-Public Use
  Company Number: US-2005-015557

PATIENT
  Age: 13 Year
  Sex: Female
  Weight: 63.5 kg

DRUGS (2)
  1. YASMIN [Suspect]
     Indication: ACNE
     Dosage: 1 TAB (S), 1X/DAY, ORAL
     Route: 048
     Dates: start: 20050101, end: 20050728
  2. TETRACYCLINE [Concomitant]

REACTIONS (4)
  - ALOPECIA [None]
  - DEPRESSED MOOD [None]
  - SUICIDE ATTEMPT [None]
  - VISION BLURRED [None]
